FAERS Safety Report 10349581 (Version 1)
Quarter: 2014Q3

REPORT INFORMATION
  Report Type: Spontaneous
  Country: AR (occurrence: None)
  Receive Date: 20140728
  Receipt Date: 20140728
  Transmission Date: 20150326
  Serious: Yes (Other)
  Sender: FDA-Public Use
  Company Number: VAL_03246_2014

PATIENT
  Age: 57 Year
  Sex: Male

DRUGS (2)
  1. METOPROLOL [Suspect]
     Active Substance: METOPROLOL
     Indication: PRODUCT USED FOR UNKNOWN INDICATION
     Dosage: DF
  2. DRONEDARONE [Suspect]
     Active Substance: DRONEDARONE
     Indication: PRODUCT USED FOR UNKNOWN INDICATION

REACTIONS (9)
  - Hot flush [None]
  - Atrioventricular block first degree [None]
  - Dyspnoea [None]
  - Lethargy [None]
  - Electrocardiogram QT prolonged [None]
  - Supraventricular extrasystoles [None]
  - Drug intolerance [None]
  - Drug interaction [None]
  - Atrial fibrillation [None]
